FAERS Safety Report 9050617 (Version 2)
Quarter: 2013Q1

REPORT INFORMATION
  Report Type: Spontaneous
  Country: US (occurrence: US)
  Receive Date: 20130205
  Receipt Date: 20130313
  Transmission Date: 20140127
  Serious: Yes (Other)
  Sender: FDA-Public Use
  Company Number: US-PFIZER INC-2013047178

PATIENT
  Age: 58 Year
  Sex: Female

DRUGS (3)
  1. LIPITOR [Suspect]
     Dosage: 40 MG, 1X/DAY
     Route: 048
     Dates: start: 201104, end: 201110
  2. LIPITOR [Suspect]
     Dosage: 20 MG, 1X/DAY
     Route: 048
     Dates: start: 201110, end: 201112
  3. LISINOPRIL [Concomitant]
     Indication: BLOOD PRESSURE INCREASED
     Dosage: 2.5 MG, 1X/DAY
     Dates: start: 201104

REACTIONS (1)
  - Polymyalgia rheumatica [Not Recovered/Not Resolved]
